FAERS Safety Report 6893464-5 (Version None)
Quarter: 2010Q3

REPORT INFORMATION
  Report Type: 
  Country: None (occurrence: None)
  Receive Date: 20100731
  Receipt Date: 20090917
  Transmission Date: 20110219
  Serious: Yes (Hospitalization)
  Sender: FDA-Public Use
  Company Number: SE-PFIZER INC-2009194195

PATIENT
  Sex: Male
  Weight: 88 kg

DRUGS (13)
  1. BLINDED *NO SUBJECT DRUG [Suspect]
     Indication: CARDIAC FAILURE
     Dosage: UNK
     Route: 048
     Dates: start: 20060811
  2. BLINDED *PLACEBO [Suspect]
     Indication: CARDIAC FAILURE
     Dosage: UNK
     Route: 048
     Dates: start: 20060811
  3. EPLERENONE [Suspect]
     Indication: CARDIAC FAILURE
     Dosage: UNK
     Route: 048
     Dates: start: 20060811
  4. SIMVASTATIN [Concomitant]
     Dosage: UNK
     Route: 048
     Dates: start: 20070220
  5. BENDROFLUAZIDE [Concomitant]
     Dosage: 2.5 MG, 1X/DAY
     Dates: start: 20070220, end: 20090317
  6. ENALAPRIL [Concomitant]
     Dosage: UNK
     Route: 048
     Dates: start: 20070220
  7. ACETYLSALICYLIC ACID [Concomitant]
     Dosage: UNK
     Route: 048
     Dates: start: 19950201
  8. OXAZEPAM [Concomitant]
     Dosage: UNK
     Route: 048
     Dates: start: 20060601
  9. GLYCERYL TRINITRATE [Concomitant]
     Dosage: UNK
     Route: 048
     Dates: start: 20070227
  10. PROPIOMAZINE [Concomitant]
     Dosage: UNK
     Route: 048
     Dates: start: 20070227
  11. ZOLPIDEM [Concomitant]
     Dosage: UNK
     Dates: start: 20070227
  12. METOPROLOL [Concomitant]
     Dosage: UNK
     Route: 048
     Dates: start: 20070227
  13. FUROSEMIDE [Concomitant]
     Dosage: UNK
     Route: 048
     Dates: start: 20070227

REACTIONS (1)
  - ATRIAL FIBRILLATION [None]
